FAERS Safety Report 26122800 (Version 1)
Quarter: 2025Q4

REPORT INFORMATION
  Report Type: Report from Study
  Country: CA (occurrence: CA)
  Receive Date: 20251204
  Receipt Date: 20251204
  Transmission Date: 20260117
  Serious: Yes (Death, Other)
  Sender: GLAXOSMITHKLINE
  Company Number: CA-GSK-CA2024058350

PATIENT
  Age: 91 Year
  Sex: Male

DRUGS (3)
  1. MEPOLIZUMAB [Suspect]
     Active Substance: MEPOLIZUMAB
     Indication: Nasal polyps
     Dosage: 100 MG, Q4W
  2. MEPOLIZUMAB [Suspect]
     Active Substance: MEPOLIZUMAB
     Indication: Asthma
  3. PULMICORT TURBUHALER [Concomitant]
     Active Substance: BUDESONIDE
     Indication: Product used for unknown indication
     Dosage: UNK, RINSE

REACTIONS (5)
  - Death [Fatal]
  - Dizziness [Unknown]
  - Feeling abnormal [Unknown]
  - Increased upper airway secretion [Not Recovered/Not Resolved]
  - Fatigue [Not Recovered/Not Resolved]

NARRATIVE: CASE EVENT DATE: 20240507
